FAERS Safety Report 20658926 (Version 4)
Quarter: 2022Q3

REPORT INFORMATION
  Report Type: Report from Study
  Country: US (occurrence: US)
  Receive Date: 20220331
  Receipt Date: 20220930
  Transmission Date: 20221027
  Serious: Yes (Hospitalization, Other)
  Sender: FDA-Public Use
  Company Number: US-XERIS PHARMACEUTICALS-2022XER00002

PATIENT
  Age: 46 Year
  Sex: Male
  Weight: 104.31 kg

DRUGS (20)
  1. KEVEYIS [Suspect]
     Active Substance: DICHLORPHENAMIDE
     Indication: Paralysis
     Dosage: 25 MG, 2X/DAY
     Route: 048
     Dates: start: 2019, end: 2019
  2. KEVEYIS [Suspect]
     Active Substance: DICHLORPHENAMIDE
     Indication: Familial periodic paralysis
     Dosage: 1 AND 1/2 TABLET (75 MG), 2X/DAY
     Route: 048
     Dates: start: 2019, end: 201908
  3. KEVEYIS [Suspect]
     Active Substance: DICHLORPHENAMIDE
     Dosage: 1/2 TABLET (25 MG), 2X/DAY (IN THE MORNING AND AFTERNOON)
     Route: 048
     Dates: start: 201908, end: 2022
  4. KEVEYIS [Suspect]
     Active Substance: DICHLORPHENAMIDE
     Dosage: 1/2 TABLET (25 MG), 2X/DAY (IN THE MORNING AND AFTERNOON)
     Route: 048
     Dates: start: 2022
  5. KEVEYIS [Suspect]
     Active Substance: DICHLORPHENAMIDE
     Dosage: 1/2 TABLET (25 MG), 2X/DAY
     Route: 048
  6. ACTOS [Suspect]
     Active Substance: PIOGLITAZONE HYDROCHLORIDE
     Dosage: UNK
  7. ASCORBIC ACID [Suspect]
     Active Substance: ASCORBIC ACID
     Dosage: UNK
     Dates: start: 202203
  8. UNSPECIFIED K+ INTAKE (POWDER) [Concomitant]
  9. UNSPECIFIED K+ INTAKE (LIQUID) [Concomitant]
  10. VITAMIN D [Concomitant]
     Active Substance: VITAMIN D NOS
  11. ATENOLOL [Concomitant]
     Active Substance: ATENOLOL
  12. ATORVASTATIN [Concomitant]
     Active Substance: ATORVASTATIN
  13. ALLOPURINOL [Concomitant]
     Active Substance: ALLOPURINOL
  14. MONTELUKAST SODIUM [Concomitant]
     Active Substance: MONTELUKAST SODIUM
  15. LORATADINE [Concomitant]
     Active Substance: LORATADINE
  16. POTASSIUM BICARB [Concomitant]
  17. POTASSIUM CITRATE [Concomitant]
     Active Substance: POTASSIUM CITRATE
  18. POTASSIUM CHLORIDE [Concomitant]
     Active Substance: POTASSIUM CHLORIDE
  19. METFORMIN [Concomitant]
     Active Substance: METFORMIN HYDROCHLORIDE
  20. JARDIANCE [Concomitant]
     Active Substance: EMPAGLIFLOZIN

REACTIONS (10)
  - Metabolic alkalosis [Not Recovered/Not Resolved]
  - Renal tubular acidosis [Not Recovered/Not Resolved]
  - Paralysis [Not Recovered/Not Resolved]
  - Nephrolithiasis [Not Recovered/Not Resolved]
  - Hypokalaemia [Not Recovered/Not Resolved]
  - Back pain [Recovering/Resolving]
  - Abdominal discomfort [Unknown]
  - Tinnitus [Recovering/Resolving]
  - COVID-19 [Recovering/Resolving]
  - Feeling abnormal [Not Recovered/Not Resolved]

NARRATIVE: CASE EVENT DATE: 20190501
